FAERS Safety Report 8486581-X (Version None)
Quarter: 2012Q3

REPORT INFORMATION
  Report Type: 
  Country: None (occurrence: None)
  Receive Date: 20120703
  Receipt Date: 20120628
  Transmission Date: 20120928
  Serious: Yes (Death)
  Sender: FDA-Public Use
  Company Number: FR-ABBOTT-12P-056-0951074-00

PATIENT
  Sex: Female
  Weight: 70 kg

DRUGS (15)
  1. NEFOPAM MYLAN [Suspect]
     Indication: PRODUCT USED FOR UNKNOWN INDICATION
     Dosage: 20 MG DAILY DOSE
     Route: 042
     Dates: start: 20120418, end: 20120418
  2. PROPOFOL [Suspect]
     Indication: INDUCTION OF ANAESTHESIA
     Dosage: 170 MG DAILY DOSE
     Route: 042
     Dates: start: 20120418, end: 20120418
  3. CARTEOLOL HYDROCHLORIDE [Concomitant]
     Indication: PRODUCT USED FOR UNKNOWN INDICATION
     Route: 047
  4. EPHEDRINE AGUETTANT [Suspect]
     Indication: PRODUCT USED FOR UNKNOWN INDICATION
     Dosage: 6 MG DAILY DOSE
     Route: 042
     Dates: start: 20120418, end: 20120418
  5. OMEPRAZOLE [Concomitant]
     Indication: PRODUCT USED FOR UNKNOWN INDICATION
  6. DROPERIDOL [Suspect]
     Indication: PRODUCT USED FOR UNKNOWN INDICATION
     Dosage: 1.25 MG DAILY DOSE
     Route: 042
     Dates: start: 20120418, end: 20120418
  7. SEVOFLURANE [Suspect]
     Indication: INDUCTION OF ANAESTHESIA
     Route: 055
     Dates: start: 20120418, end: 20120418
  8. CEFAZOLIN [Suspect]
     Indication: PREMEDICATION
     Dosage: 2 GRAM DAILY DOSE
     Route: 042
     Dates: start: 20120418, end: 20120418
  9. IBUPROFEN [Concomitant]
     Indication: PRODUCT USED FOR UNKNOWN INDICATION
  10. ACETAMINOPHEN [Suspect]
     Indication: INDUCTION OF ANAESTHESIA
     Dosage: 1 GRAM DAILY DOSE
     Route: 042
     Dates: start: 20120418, end: 20120418
  11. KETAMINE HCL [Suspect]
     Indication: INDUCTION OF ANAESTHESIA
     Dosage: 15 MG DAILY DOSE
     Route: 042
     Dates: start: 20120418, end: 20120418
  12. MIDAZOLAM [Suspect]
     Indication: INDUCTION OF ANAESTHESIA
     Dosage: 1.5 MG DAILY DOSE
     Route: 042
     Dates: start: 20120418, end: 20120418
  13. NIMBEX [Suspect]
     Indication: INDUCTION OF ANAESTHESIA
     Route: 042
     Dates: start: 20120418, end: 20120418
  14. ACETAMINOPHEN AND TRAMADOL HCL [Concomitant]
     Indication: PRODUCT USED FOR UNKNOWN INDICATION
  15. SUFENTANIL RENAUDIN [Suspect]
     Indication: INDUCTION OF ANAESTHESIA
     Dosage: 50 MCG DAILY DOSE
     Route: 042
     Dates: start: 20120418, end: 20120418

REACTIONS (2)
  - CARDIAC ARREST [None]
  - VENTRICULAR TACHYCARDIA [None]
